FAERS Safety Report 12900822 (Version 1)
Quarter: 2016Q4

REPORT INFORMATION
  Report Type: Spontaneous
  Country: US (occurrence: US)
  Receive Date: 20161101
  Receipt Date: 20161101
  Transmission Date: 20170207
  Serious: Yes (Other)
  Sender: FDA-Public Use
  Company Number: US-BAYER-2016-205523

PATIENT
  Sex: Female

DRUGS (2)
  1. CIPRO [Suspect]
     Active Substance: CIPROFLOXACIN HYDROCHLORIDE
     Indication: URINARY TRACT INFECTION
  2. CIPRO [Suspect]
     Active Substance: CIPROFLOXACIN HYDROCHLORIDE
     Indication: KIDNEY INFECTION
     Dosage: UNK, BID

REACTIONS (9)
  - Insomnia [None]
  - Arthralgia [None]
  - Paraesthesia [None]
  - Pain [None]
  - Fatigue [None]
  - Palpitations [None]
  - Pain in extremity [None]
  - Hypomenorrhoea [None]
  - Panic attack [None]
